FAERS Safety Report 6044449-2 (Version None)
Quarter: 2009Q1

REPORT INFORMATION
  Report Type: 
  Country: None (occurrence: None)
  Receive Date: 20090120
  Receipt Date: 20090116
  Transmission Date: 20090719
  Serious: Yes (Hospitalization)
  Sender: FDA-Public Use
  Company Number: US-PFIZER INC-2005136952

PATIENT
  Sex: Male

DRUGS (14)
  1. BLINDED *PLACEBO [Suspect]
     Indication: HIV INFECTION
     Dosage: UNK
     Route: 048
     Dates: start: 20050203
  2. BLINDED MARAVIROC [Suspect]
     Indication: HIV INFECTION
     Dosage: UNK
     Route: 048
     Dates: start: 20050203
  3. ENFUVIRTIDE [Concomitant]
     Route: 058
     Dates: start: 20050203
  4. TRUVADA [Concomitant]
     Route: 048
     Dates: start: 20050203
  5. SAQUINAVIR [Concomitant]
     Route: 048
     Dates: start: 20050203
  6. RITONAVIR [Concomitant]
     Route: 048
     Dates: start: 20050203
  7. FLUCONAZOLE [Concomitant]
     Route: 048
     Dates: start: 19950925
  8. BACTRIM [Concomitant]
     Route: 048
     Dates: start: 19950101
  9. AZITHROMYCIN [Concomitant]
     Route: 048
     Dates: start: 20041004
  10. HYDROCHLOROTHIAZIDE [Concomitant]
     Route: 048
     Dates: start: 20041004
  11. DOXEPIN HCL [Concomitant]
     Route: 048
     Dates: start: 20050817
  12. OXYCONTIN [Concomitant]
     Route: 048
     Dates: start: 20050726
  13. OXYCODONE [Concomitant]
     Route: 048
     Dates: start: 20050726
  14. IMITREX [Concomitant]
     Route: 048
     Dates: start: 20050913

REACTIONS (2)
  - DEPRESSION [None]
  - SUICIDAL IDEATION [None]
